FAERS Safety Report 7070591-3 (Version None)
Quarter: 2010Q4

REPORT INFORMATION
  Report Type: 
  Country: None (occurrence: None)
  Receive Date: 20101029
  Receipt Date: 20101021
  Transmission Date: 20110411
  Serious: Yes (Other)
  Sender: FDA-Public Use
  Company Number: GB-PFIZER INC-2010134295

PATIENT
  Age: 69 Year
  Sex: Female
  Weight: 96 kg

DRUGS (1)
  1. MISOPROSTOL, DICLOFENAC SODIUM [Suspect]
     Indication: OSTEOARTHRITIS
     Dosage: 50 MG, UNK
     Route: 048

REACTIONS (1)
  - VENTRICULAR HYPERTROPHY [None]
